FAERS Safety Report 8522025-7 (Version None)
Quarter: 2012Q3

REPORT INFORMATION
  Report Type: 
  Country: None (occurrence: None)
  Receive Date: 20120719
  Receipt Date: 20120711
  Transmission Date: 20120928
  Serious: Yes (Hospitalization, Disabling, Other)
  Sender: FDA-Public Use
  Company Number: US-009507513-1111USA02615

PATIENT

DRUGS (4)
  1. FOSAMAX [Suspect]
     Indication: OSTEOPENIA
     Dosage: 70 MG, QW
     Route: 048
     Dates: start: 20000101, end: 20101019
  2. HORMONES (UNSPECIFIED) [Concomitant]
     Dates: start: 19990101, end: 20080101
  3. ALENDRONATE SODIUM [Suspect]
     Dosage: 70 MG, UNK
     Dates: start: 20080721
  4. FOSAMAX [Suspect]
     Dosage: 70 MG, UNK
     Route: 048

REACTIONS (65)
  - TOOTH DISORDER [None]
  - FALL [None]
  - HYPOTENSION [None]
  - DYSPNOEA [None]
  - DENTAL CARIES [None]
  - GINGIVITIS [None]
  - ANGIOPATHY [None]
  - FIBROCYSTIC BREAST DISEASE [None]
  - BREAST DISORDER [None]
  - ARTHRITIS [None]
  - INTERVERTEBRAL DISC PROTRUSION [None]
  - OSTEOARTHRITIS [None]
  - BLOOD POTASSIUM DECREASED [None]
  - SENSITIVITY OF TEETH [None]
  - LEUKOPLAKIA ORAL [None]
  - SINUSITIS [None]
  - SEASONAL ALLERGY [None]
  - VEIN DISORDER [None]
  - WOUND [None]
  - MUSCLE SPASMS [None]
  - TOOTH LOSS [None]
  - TOOTH FRACTURE [None]
  - SINUS DISORDER [None]
  - CYST [None]
  - SKIN DISORDER [None]
  - RADICULITIS [None]
  - PLANTAR FASCIITIS [None]
  - CHEST DISCOMFORT [None]
  - BONE LOSS [None]
  - PERIPHERAL VASCULAR DISORDER [None]
  - GLUCOSE TOLERANCE IMPAIRED [None]
  - URINARY TRACT INFECTION [None]
  - HYPERCHOLESTEROLAEMIA [None]
  - INTERVERTEBRAL DISC DEGENERATION [None]
  - BASAL CELL CARCINOMA [None]
  - HIATUS HERNIA [None]
  - DENTAL NECROSIS [None]
  - DENTAL PLAQUE [None]
  - VARICOSE VEIN [None]
  - FEMUR FRACTURE [None]
  - HYPERTENSION [None]
  - POST PROCEDURAL HAEMORRHAGE [None]
  - LIMB ASYMMETRY [None]
  - HEART RATE IRREGULAR [None]
  - GINGIVAL RECESSION [None]
  - DEVICE BREAKAGE [None]
  - TOOTH ABSCESS [None]
  - PNEUMONIA [None]
  - IRRITABLE BOWEL SYNDROME [None]
  - EYE DISORDER [None]
  - BACK PAIN [None]
  - ASTHMA [None]
  - BLOOD GLUCOSE INCREASED [None]
  - IMPAIRED HEALING [None]
  - BLOOD PHOSPHORUS DECREASED [None]
  - DISCOMFORT [None]
  - GINGIVAL BLEEDING [None]
  - TOOTHACHE [None]
  - RHEUMATIC FEVER [None]
  - BRONCHITIS [None]
  - SPONDYLOLISTHESIS [None]
  - FRACTURE DELAYED UNION [None]
  - TOOTH DEPOSIT [None]
  - CHRONIC OBSTRUCTIVE PULMONARY DISEASE [None]
  - LYMPHADENOPATHY [None]
